FAERS Safety Report 24245954 (Version 1)
Quarter: 2024Q3

REPORT INFORMATION
  Report Type: Spontaneous
  Country: AR (occurrence: AR)
  Receive Date: 20240824
  Receipt Date: 20240824
  Transmission Date: 20241016
  Serious: Yes (Other)
  Sender: ABBVIE
  Company Number: AR-ABBVIE-5891326

PATIENT
  Sex: Female

DRUGS (2)
  1. HUMIRA [Suspect]
     Active Substance: ADALIMUMAB
     Indication: Rheumatoid arthritis
     Dosage: START DATE TEXT: MORE THAN TWO YEARS AGO
     Route: 058
  2. HUMIRA [Suspect]
     Active Substance: ADALIMUMAB
     Route: 058

REACTIONS (5)
  - Myocarditis [Unknown]
  - Pain [Unknown]
  - Investigation abnormal [Unknown]
  - Inflammation [Unknown]
  - Needle issue [Unknown]

NARRATIVE: CASE EVENT DATE: 20240803
